FAERS Safety Report 17867036 (Version 2)
Quarter: 2020Q3

REPORT INFORMATION
  Report Type: Report from Study
  Country: AU (occurrence: AU)
  Receive Date: 20200605
  Receipt Date: 20200902
  Transmission Date: 20201103
  Serious: Yes (Other)
  Sender: FDA-Public Use
  Company Number: AU-TOLMAR, INC.-19AU000023

PATIENT
  Sex: Male

DRUGS (1)
  1. ELIGARD [Suspect]
     Active Substance: LEUPROLIDE ACETATE
     Indication: PROSTATE CANCER
     Dosage: 45 MG, Q 6 MONTH
     Route: 065
     Dates: start: 20190830

REACTIONS (5)
  - Lethargy [Unknown]
  - Gynaecomastia [Unknown]
  - Testicular atrophy [Unknown]
  - Bladder cancer [Unknown]
  - Hot flush [Not Recovered/Not Resolved]
